FAERS Safety Report 13592431 (Version 1)
Quarter: 2017Q2

REPORT INFORMATION
  Report Type: Spontaneous
  Country: US (occurrence: US)
  Receive Date: 20170530
  Receipt Date: 20170530
  Transmission Date: 20170830
  Serious: No
  Sender: FDA-Public Use
  Company Number: US-MIST-STN-2017-0245

PATIENT
  Sex: Male

DRUGS (1)
  1. AVANAFIL [Suspect]
     Active Substance: AVANAFIL
     Indication: PRODUCT USED FOR UNKNOWN INDICATION

REACTIONS (1)
  - Ocular discomfort [Not Recovered/Not Resolved]
